FAERS Safety Report 23147417 (Version 1)
Quarter: 2023Q4

REPORT INFORMATION
  Report Type: Spontaneous
  Country: US (occurrence: US)
  Receive Date: 20231106
  Receipt Date: 20231106
  Transmission Date: 20240110
  Serious: No
  Sender: FDA-Public Use
  Company Number: US-BoehringerIngelheim-2023-BI-271000

PATIENT
  Age: 59 Year

DRUGS (8)
  1. SPIRIVA [Suspect]
     Active Substance: TIOTROPIUM BROMIDE MONOHYDRATE
     Indication: Product used for unknown indication
     Dates: end: 20231004
  2. DUPIXENT [Suspect]
     Active Substance: DUPILUMAB
     Indication: Product used for unknown indication
     Dosage: DAY 1
     Route: 058
     Dates: start: 20230823
  3. DUPIXENT [Suspect]
     Active Substance: DUPILUMAB
     Dosage: EVERY 14 DAYS
     Route: 058
     Dates: start: 20230906
  4. AMOXICILLIN [Concomitant]
     Active Substance: AMOXICILLIN
     Indication: Product used for unknown indication
  5. PREDNISONE [Concomitant]
     Active Substance: PREDNISONE
     Indication: Product used for unknown indication
  6. PREDNISONE [Concomitant]
     Active Substance: PREDNISONE
     Dates: start: 202311
  7. PREDNISONE [Concomitant]
     Active Substance: PREDNISONE
     Dates: start: 20231009
  8. ERYTHROMYCIN [Concomitant]
     Active Substance: ERYTHROMYCIN
     Indication: Product used for unknown indication

REACTIONS (7)
  - Malaise [Unknown]
  - Nasal congestion [Unknown]
  - Wheezing [Unknown]
  - Pyrexia [Unknown]
  - Increased need for sleep [Recovering/Resolving]
  - Asthenia [Unknown]
  - Fatigue [Not Recovered/Not Resolved]

NARRATIVE: CASE EVENT DATE: 20231006
